FAERS Safety Report 7359703-1 (Version None)
Quarter: 2011Q1

REPORT INFORMATION
  Report Type: 
  Country: None (occurrence: None)
  Receive Date: 20110317
  Receipt Date: 20110314
  Transmission Date: 20110831
  Serious: Yes (Death, Hospitalization, Other)
  Sender: FDA-Public Use
  Company Number: US-PFIZER INC-2010048992

PATIENT
  Sex: Female
  Weight: 52.608 kg

DRUGS (4)
  1. ASPIRIN [Concomitant]
     Dosage: 81MG DAILY
     Route: 048
  2. REVATIO [Suspect]
     Indication: PULMONARY HYPERTENSION
     Dosage: 20 MG, 3X/DAY
     Route: 048
     Dates: start: 20080408, end: 20090901
  3. IBANDRONATE SODIUM [Concomitant]
     Dosage: 150 MG, MONTHLY
     Route: 048
  4. REVATIO [Suspect]
     Indication: RAYNAUD'S PHENOMENON
     Dosage: 10 MG, 3X/DAY
     Dates: start: 20090901

REACTIONS (8)
  - PULMONARY OEDEMA [None]
  - HEPATIC ENZYME INCREASED [None]
  - PLEURAL EFFUSION [None]
  - HYPOXIA [None]
  - PULMONARY HYPERTENSION [None]
  - DYSPNOEA [None]
  - RIGHT VENTRICULAR FAILURE [None]
  - HEPATIC CONGESTION [None]
